FAERS Safety Report 8197272-7 (Version None)
Quarter: 2012Q1

REPORT INFORMATION
  Report Type: 
  Country: None (occurrence: None)
  Receive Date: 20120309
  Receipt Date: 20120301
  Transmission Date: 20120608
  Serious: Yes (Other)
  Sender: FDA-Public Use
  Company Number: FR-PFIZER INC-2012021205

PATIENT
  Age: 69 Year
  Sex: Female

DRUGS (3)
  1. VFEND [Suspect]
     Indication: LUNG DISORDER
     Dosage: 200 MG, 2X/DAY
     Route: 048
     Dates: start: 20111212, end: 20120106
  2. SYMBICORT [Concomitant]
  3. COLCHICINE [Concomitant]

REACTIONS (2)
  - VISUAL IMPAIRMENT [None]
  - PHOTOPHOBIA [None]
